FAERS Safety Report 25725254 (Version 3)
Quarter: 2025Q4

REPORT INFORMATION
  Report Type: Report from Study
  Country: EU (occurrence: EU)
  Receive Date: 20250826
  Receipt Date: 20251209
  Transmission Date: 20260118
  Serious: Yes (Hospitalization, Other)
  Sender: ABBVIE
  Company Number: EU-ABBVIE-6429661

PATIENT
  Sex: Female

DRUGS (2)
  1. FOSCARBIDOPA\FOSLEVODOPA [Suspect]
     Active Substance: FOSCARBIDOPA\FOSLEVODOPA
     Indication: Parkinson^s disease
     Dosage: CRN: 0.20 ML/H, CR: 0.48 ML/H, CRH: 0.50 ML/H, ED: 0.30 ML
     Route: 058
     Dates: start: 20241118
  2. FOSCARBIDOPA\FOSLEVODOPA [Suspect]
     Active Substance: FOSCARBIDOPA\FOSLEVODOPA
     Dosage: SD: 0.50 ML, CRN: 0.20 ML/H, CR: 0.53 ML/H, CRH 0.61 ML/H, ED: 0.30 ML.
     Route: 058

REACTIONS (2)
  - Arthropathy [Unknown]
  - Peripheral vein thrombosis [Not Recovered/Not Resolved]
